FAERS Safety Report 7870019-7 (Version None)
Quarter: 2011Q4

REPORT INFORMATION
  Report Type: 
  Country: None (occurrence: None)
  Receive Date: 20111028
  Receipt Date: 20110112
  Transmission Date: 20120403
  Serious: No
  Sender: FDA-Public Use
  Company Number: US-AMGEN-USASP2011002079

PATIENT
  Age: 37 Year
  Sex: Female

DRUGS (2)
  1. ENBREL [Suspect]
     Indication: PRODUCT USED FOR UNKNOWN INDICATION
     Dosage: 50 MG, QWK
     Dates: start: 20110102
  2. ENBREL [Suspect]
     Indication: OSTEOARTHRITIS

REACTIONS (5)
  - PRODUCTIVE COUGH [None]
  - INFECTION [None]
  - SPUTUM DISCOLOURED [None]
  - CHILLS [None]
  - PYREXIA [None]
